FAERS Safety Report 5136444-2 (Version None)
Quarter: 2006Q4

REPORT INFORMATION
  Report Type: 
  Country: None (occurrence: None)
  Receive Date: 20061027
  Receipt Date: 20060512
  Transmission Date: 20070319
  Serious: No
  Sender: FDA-Public Use
  Company Number: US-BRISTOL-MYERS SQUIBB COMPANY-13376744

PATIENT
  Sex: Female

DRUGS (1)
  1. KENALOG-40 [Suspect]
     Route: 008

REACTIONS (1)
  - NIGHT SWEATS [None]
